FAERS Safety Report 7067896-9 (Version None)
Quarter: 2010Q3

REPORT INFORMATION
  Report Type: 
  Country: None (occurrence: None)
  Receive Date: 20100927
  Receipt Date: 20100615
  Transmission Date: 20110219
  Serious: Yes (Disabling)
  Sender: FDA-Public Use
  Company Number: 300718787-2010-0002

PATIENT
  Sex: Female

DRUGS (1)
  1. CORNEA [Suspect]

REACTIONS (2)
  - POSTOPERATIVE WOUND INFECTION [None]
  - WOUND INFECTION BACTERIAL [None]
